FAERS Safety Report 19241102 (Version 1)
Quarter: 2021Q2

REPORT INFORMATION
  Report Type: Spontaneous
  Country: US (occurrence: US)
  Receive Date: 20210511
  Receipt Date: 20210511
  Transmission Date: 20210717
  Serious: Yes (Disabling)
  Sender: FDA-Public Use
  Company Number: None

PATIENT
  Age: 37 Year
  Sex: Male
  Weight: 83.25 kg

DRUGS (16)
  1. PENICILLIN G SHOT [Suspect]
     Active Substance: PENICILLIN G
     Indication: SYPHILIS
     Dosage: ?          OTHER FREQUENCY:ONCE A WEEK 3;?
     Route: 030
     Dates: start: 20210427, end: 20210511
  2. ADDERALL [Concomitant]
     Active Substance: AMPHETAMINE ASPARTATE\AMPHETAMINE SULFATE\DEXTROAMPHETAMINE SACCHARATE\DEXTROAMPHETAMINE SULFATE
  3. FLONASE [Concomitant]
     Active Substance: FLUTICASONE PROPIONATE
  4. CLARITIN [Concomitant]
     Active Substance: LORATADINE
  5. OMEGA 3 [Concomitant]
     Active Substance: OMEGA-3 FATTY ACIDS
  6. VITAMIN B12 [Concomitant]
     Active Substance: CYANOCOBALAMIN
  7. MUPIRICIN [Concomitant]
  8. MULTI VITAMIN [Concomitant]
     Active Substance: VITAMINS
  9. CYMBALTA [Concomitant]
     Active Substance: DULOXETINE HYDROCHLORIDE
  10. VYVANSE [Concomitant]
     Active Substance: LISDEXAMFETAMINE DIMESYLATE
  11. MUCINEX D [Concomitant]
     Active Substance: GUAIFENESIN\PSEUDOEPHEDRINE HYDROCHLORIDE
  12. RETIN?A [Concomitant]
     Active Substance: TRETINOIN
  13. TRAZODONE [Concomitant]
     Active Substance: TRAZODONE HYDROCHLORIDE
  14. DAVOTO [Concomitant]
  15. OMEORAZOLE [Concomitant]
  16. OMEGA 6 SL [Concomitant]

REACTIONS (21)
  - Electric shock sensation [None]
  - Malaise [None]
  - Gastric dilatation [None]
  - Pain [None]
  - Pyrexia [None]
  - Hepatic pain [None]
  - Feelings of worthlessness [None]
  - Major depression [None]
  - Feeling guilty [None]
  - Panic attack [None]
  - Suicidal ideation [None]
  - Myalgia [None]
  - Depressed mood [None]
  - Pathological doubt [None]
  - Feeling cold [None]
  - Somnolence [None]
  - Fatigue [None]
  - Depression [None]
  - Crying [None]
  - Serotonin syndrome [None]
  - Asthenia [None]

NARRATIVE: CASE EVENT DATE: 20210506
